FAERS Safety Report 5699568-7 (Version None)
Quarter: 2008Q2

REPORT INFORMATION
  Report Type: 
  Country: None (occurrence: None)
  Receive Date: 20080410
  Receipt Date: 20080401
  Transmission Date: 20081010
  Serious: Yes (Hospitalization)
  Sender: FDA-Public Use
  Company Number: JP-ABBOTT-08P-087-0445019-00

PATIENT
  Age: 12 Year
  Sex: Female

DRUGS (8)
  1. CLARITH TABLETS [Suspect]
     Indication: INFLUENZA
     Route: 048
     Dates: start: 20080125, end: 20080128
  2. ZANAMIVIR [Suspect]
     Indication: INFLUENZA
     Route: 055
     Dates: start: 20080126, end: 20080127
  3. CHLORPHENIRAMINE MALEATE [Concomitant]
     Indication: INFLUENZA
     Route: 048
     Dates: start: 20080125, end: 20080128
  4. SERRAPEPTASE [Concomitant]
     Indication: INFLUENZA
     Route: 048
     Dates: start: 20080125, end: 20080128
  5. DIMEMORFAN PHOSPHATE [Concomitant]
     Indication: INFLUENZA
     Route: 048
     Dates: start: 20080125, end: 20080128
  6. L-CARBOCISTEINE [Concomitant]
     Indication: INFLUENZA
     Route: 048
     Dates: start: 20080125, end: 20080128
  7. IBUPROFEN [Concomitant]
     Indication: INFLUENZA
     Route: 048
     Dates: start: 20080125, end: 20080126
  8. BIFIDOBACTERIUM [Concomitant]
     Indication: INFLUENZA
     Route: 048
     Dates: start: 20080125, end: 20080128

REACTIONS (3)
  - ANXIETY [None]
  - HALLUCINATION, AUDITORY [None]
  - VISION BLURRED [None]
